FAERS Safety Report 18165680 (Version 1)
Quarter: 2020Q3

REPORT INFORMATION
  Report Type: Report from Study
  Country: US (occurrence: US)
  Receive Date: 20200819
  Receipt Date: 20200819
  Transmission Date: 20201103
  Serious: Yes (Other)
  Sender: FDA-Public Use
  Company Number: US-AUROBINDO-AUR-APL-2015-02939

PATIENT
  Age: 58 Year
  Sex: Male

DRUGS (5)
  1. TRAMADOL. [Suspect]
     Active Substance: TRAMADOL
     Indication: ANALGESIC THERAPY
     Dosage: UNK
     Route: 065
  2. FENTANYL. [Suspect]
     Active Substance: FENTANYL
     Indication: THERAPEUTIC HYPOTHERMIA
     Dosage: 75?150 MCG/HOUR
     Route: 042
  3. MIDAZOLAM. [Suspect]
     Active Substance: MIDAZOLAM
     Indication: THERAPEUTIC HYPOTHERMIA
     Dosage: UNK
     Route: 065
  4. ATRACURIUM BESYLATE. [Suspect]
     Active Substance: ATRACURIUM BESYLATE
     Indication: THERAPEUTIC HYPOTHERMIA
     Dosage: UNK
     Route: 065
  5. SERTRALINE [Suspect]
     Active Substance: SERTRALINE HYDROCHLORIDE
     Indication: ANTIDEPRESSANT THERAPY
     Dosage: 50 MILLIGRAM, ONCE A DAY
     Route: 065

REACTIONS (10)
  - Clonus [Recovered/Resolved]
  - Hypertension [Recovered/Resolved]
  - Pyrexia [Recovered/Resolved]
  - Serotonin syndrome [Recovered/Resolved]
  - Agitation [Recovered/Resolved]
  - Tremor [Recovered/Resolved]
  - Unresponsive to stimuli [Recovered/Resolved]
  - Flushing [Recovered/Resolved]
  - Muscle rigidity [Recovered/Resolved]
  - Muscle contractions involuntary [Recovered/Resolved]
